FAERS Safety Report 5274778-1 (Version None)
Quarter: 2007Q1

REPORT INFORMATION
  Report Type: 
  Country: None (occurrence: None)
  Receive Date: 20070321
  Receipt Date: 20061109
  Transmission Date: 20070707
  Serious: Yes (Death)
  Sender: FDA-Public Use
  Company Number: 232463K06USA

PATIENT
  Age: 52 Year
  Sex: Female

DRUGS (1)
  1. REBIF [Suspect]
     Indication: MULTIPLE SCLEROSIS
     Dates: start: 20030613, end: 20060504

REACTIONS (4)
  - FIBRIN D DIMER INCREASED [None]
  - HEPATITIS [None]
  - MUSCLE SPASMS [None]
  - PANCREATITIS [None]
